FAERS Safety Report 25750310 (Version 1)
Quarter: 2025Q3

REPORT INFORMATION
  Report Type: Spontaneous
  Country: US (occurrence: None)
  Receive Date: 20250829
  Receipt Date: 20250829
  Transmission Date: 20251021
  Serious: Yes (unspecified)
  Sender: FDA-CTU
  Company Number: None

PATIENT
  Sex: Female

DRUGS (1)
  1. IBRANCE [Suspect]
     Active Substance: PALBOCICLIB
     Indication: Neoplasm malignant

REACTIONS (10)
  - Aphonia [None]
  - Drug hypersensitivity [None]
  - Vocal cord paralysis [None]
  - Productive cough [None]
  - Chromaturia [None]
  - Micturition urgency [None]
  - Alopecia [None]
  - Alopecia [None]
  - Fatigue [None]
  - Dry skin [None]

NARRATIVE: CASE EVENT DATE: 20250606
